FAERS Safety Report 7422766-9 (Version None)
Quarter: 2011Q2

REPORT INFORMATION
  Report Type: 
  Country: None (occurrence: None)
  Receive Date: 20110419
  Receipt Date: 20110405
  Transmission Date: 20111010
  Serious: Yes (Other)
  Sender: FDA-Public Use
  Company Number: DE-RANBAXY-2011RR-43604

PATIENT
  Age: 13 Year
  Sex: Female

DRUGS (1)
  1. CEFACLOR 500MG BASICS KAPSELN [Suspect]
     Dosage: UNK

REACTIONS (1)
  - SKIN EXFOLIATION [None]
